FAERS Safety Report 16006763 (Version 1)
Quarter: 2019Q1

REPORT INFORMATION
  Report Type: Spontaneous
  Country: AT (occurrence: AT)
  Receive Date: 20190226
  Receipt Date: 20190226
  Transmission Date: 20190418
  Serious: Yes (Disabling)
  Sender: FDA-Public Use
  Company Number: AT-AMREGENT-20190339

PATIENT
  Age: 34 Year
  Sex: Female
  Weight: 51 kg

DRUGS (1)
  1. FERINJECT [Suspect]
     Active Substance: FERRIC CARBOXYMALTOSE
     Dosage: 1000 MG
     Route: 041
     Dates: start: 20190213, end: 20190213

REACTIONS (4)
  - Infusion site swelling [Recovered/Resolved with Sequelae]
  - Extravasation [Not Recovered/Not Resolved]
  - Infusion site oedema [Recovered/Resolved with Sequelae]
  - Infusion site discolouration [Recovered/Resolved with Sequelae]

NARRATIVE: CASE EVENT DATE: 20190213
